FAERS Safety Report 23620296 (Version 1)
Quarter: 2024Q1

REPORT INFORMATION
  Report Type: Spontaneous
  Country: US (occurrence: None)
  Receive Date: 20240312
  Receipt Date: 20240312
  Transmission Date: 20240409
  Serious: Yes (Other)
  Sender: FDA-Public Use
  Company Number: US-ROCHE-3520969

PATIENT
  Age: 28 Year
  Sex: Female

DRUGS (2)
  1. XOLAIR [Suspect]
     Active Substance: OMALIZUMAB
     Indication: Product used for unknown indication
     Route: 065
  2. FEXOFENADINE [Concomitant]
     Active Substance: FEXOFENADINE HYDROCHLORIDE

REACTIONS (10)
  - Pruritus [Unknown]
  - Angioedema [Unknown]
  - Skin disorder [Unknown]
  - Hypersensitivity [Unknown]
  - Urticaria [Unknown]
  - Anxiety [Unknown]
  - Gastrooesophageal reflux disease [Unknown]
  - Hiatus hernia [Unknown]
  - Reflux laryngitis [Unknown]
  - Ectopic gastric mucosa [Unknown]
